FAERS Safety Report 13784520 (Version 1)
Quarter: 2017Q3

REPORT INFORMATION
  Report Type: Spontaneous
  Country: US (occurrence: US)
  Receive Date: 20170724
  Receipt Date: 20170724
  Transmission Date: 20171127
  Serious: No
  Sender: FDA-Public Use
  Company Number: US-IMPAX LABORATORIES, INC-2017-IPXL-01214

PATIENT
  Age: 85 Year
  Sex: Female
  Weight: 57 kg

DRUGS (1)
  1. RYTARY [Suspect]
     Active Substance: CARBIDOPA\LEVODOPA
     Indication: PARKINSON^S DISEASE
     Dosage: 48.75/195MG 2 CAPSULES PER DAY
     Route: 065
     Dates: start: 20170422, end: 20170425

REACTIONS (6)
  - Headache [Recovering/Resolving]
  - Insomnia [Recovering/Resolving]
  - Dry mouth [Recovering/Resolving]
  - Drug ineffective [Unknown]
  - Nightmare [Recovering/Resolving]
  - Palpitations [Recovering/Resolving]

NARRATIVE: CASE EVENT DATE: 20170422
